FAERS Safety Report 9094416 (Version 1)
Quarter: 2013Q1

REPORT INFORMATION
  Report Type: Spontaneous
  Country: CA (occurrence: CA)
  Receive Date: 20130201
  Receipt Date: 20130201
  Transmission Date: 20140127
  Serious: Yes (Hospitalization, Other)
  Sender: FDA-Public Use
  Company Number: CA-ELI_LILLY_AND_COMPANY-CA201301008667

PATIENT
  Age: 89 Year
  Sex: Female

DRUGS (9)
  1. FORTEO [Suspect]
     Indication: OSTEOPOROSIS
     Dosage: 20 UG, QD
     Route: 058
     Dates: start: 20110308, end: 20130106
  2. COUMADIN [Concomitant]
     Dosage: UNK
  3. COZAAR [Concomitant]
     Dosage: UNK
  4. PANTOLOC                           /01263204/ [Concomitant]
     Dosage: UNK
  5. COLACE [Concomitant]
     Dosage: UNK
  6. SENNA [Concomitant]
     Dosage: UNK
  7. LANOXIN [Concomitant]
     Dosage: UNK
  8. TRIATEC [Concomitant]
     Dosage: UNK
  9. ISOPTIN [Concomitant]
     Dosage: UNK

REACTIONS (4)
  - Sepsis [Recovering/Resolving]
  - Pneumonia [Recovered/Resolved]
  - Nephrolithiasis [Recovering/Resolving]
  - Asthenia [Not Recovered/Not Resolved]
